FAERS Safety Report 12898799 (Version 1)
Quarter: 2016Q4

REPORT INFORMATION
  Report Type: Report from Study
  Country: US (occurrence: US)
  Receive Date: 20161101
  Receipt Date: 20161101
  Transmission Date: 20170207
  Serious: No
  Sender: FDA-Public Use
  Company Number: US-ALEXION PHARMACEUTICALS INC.-A201608253

PATIENT
  Age: 45 Year
  Sex: Female

DRUGS (1)
  1. SOLIRIS [Suspect]
     Active Substance: ECULIZUMAB
     Indication: HAEMOLYTIC URAEMIC SYNDROME
     Dosage: 1200 MG, Q2W
     Route: 042
     Dates: start: 20160413, end: 20161019

REACTIONS (7)
  - Blood urea abnormal [Unknown]
  - Carbon dioxide abnormal [Unknown]
  - Blood creatinine abnormal [Unknown]
  - Blood calcium abnormal [Unknown]
  - Blood glucose abnormal [Unknown]
  - Glomerular filtration rate abnormal [Unknown]
  - Blood potassium abnormal [Unknown]

NARRATIVE: CASE EVENT DATE: 20161005
